FAERS Safety Report 5317433-1 (Version None)
Quarter: 2007Q2

REPORT INFORMATION
  Report Type: 
  Country: None (occurrence: None)
  Receive Date: 20070503
  Receipt Date: 20070503
  Transmission Date: 20071010
  Serious: Yes (Hospitalization)
  Sender: FDA-Public Use
  Company Number: None

PATIENT
  Sex: Male

DRUGS (2)
  1. ZOMETA [Suspect]
     Indication: PROSTATE CANCER
     Dosage: 3.3 MG X1 IV
     Route: 042
     Dates: start: 20070129
  2. LUPRON [Suspect]
     Indication: PROSTATE CANCER
     Dosage: 22.5 MG Q 3 MONTHS IM
     Route: 030
     Dates: start: 20070205

REACTIONS (1)
  - HIP ARTHROPLASTY [None]
